FAERS Safety Report 14233903 (Version 1)
Quarter: 2017Q4

REPORT INFORMATION
  Report Type: Spontaneous
  Country: ES (occurrence: ES)
  Receive Date: 20171129
  Receipt Date: 20171129
  Transmission Date: 20180321
  Serious: Yes (Other)
  Sender: FDA-Public Use
  Company Number: ES-PFIZER INC-2017508250

PATIENT
  Age: 22 Year
  Sex: Female

DRUGS (1)
  1. BESITRAN [Suspect]
     Active Substance: SERTRALINE HYDROCHLORIDE
     Indication: OBSESSIVE-COMPULSIVE DISORDER
     Route: 048

REACTIONS (3)
  - Feeling abnormal [Recovered/Resolved]
  - Intentional self-injury [Recovered/Resolved]
  - Vision blurred [Recovered/Resolved]
